FAERS Safety Report 12141172 (Version 8)
Quarter: 2016Q2

REPORT INFORMATION
  Report Type: Spontaneous
  Country: US (occurrence: US)
  Receive Date: 20160303
  Receipt Date: 20160616
  Transmission Date: 20160815
  Serious: No
  Sender: FDA-Public Use
  Company Number: US-PFIZER INC-2016115712

PATIENT
  Age: 53 Year
  Sex: Male

DRUGS (2)
  1. CLOTRIMAZOLE AND BETAMETHASONE DIPROPIONATE [Concomitant]
     Active Substance: BETAMETHASONE\BETAMETHASONE DIPROPIONATE\CLOTRIMAZOLE
     Dosage: UNK
  2. SUTENT [Suspect]
     Active Substance: SUNITINIB MALATE
     Indication: RENAL CELL CARCINOMA STAGE IV
     Dosage: 50 MG, CYCLIC (4 WEEKS-ON 2 WEEKS-OFF)
     Route: 048
     Dates: start: 20160126

REACTIONS (6)
  - Hypogeusia [Unknown]
  - Pain in extremity [Unknown]
  - Dysgeusia [Unknown]
  - Gait disturbance [Unknown]
  - Inflammation [Recovered/Resolved]
  - Dry skin [Unknown]

NARRATIVE: CASE EVENT DATE: 2016
